FAERS Safety Report 15171468 (Version 1)
Quarter: 2018Q3

REPORT INFORMATION
  Report Type: Spontaneous
  Country: US (occurrence: US)
  Receive Date: 20180720
  Receipt Date: 20180720
  Transmission Date: 20181010
  Serious: Yes (Death)
  Sender: FDA-Public Use
  Company Number: US-PFIZER INC-2018291554

PATIENT
  Age: 48 Year
  Sex: Male
  Weight: 71.21 kg

DRUGS (1)
  1. LYRICA [Suspect]
     Active Substance: PREGABALIN
     Indication: COLON CANCER
     Dosage: 50 MG, 3X/DAY
     Route: 048
     Dates: start: 20180529, end: 20180628

REACTIONS (2)
  - Neoplasm malignant [Fatal]
  - Product use in unapproved indication [Unknown]

NARRATIVE: CASE EVENT DATE: 20180529
